FAERS Safety Report 4454317-5 (Version None)
Quarter: 2004Q3

REPORT INFORMATION
  Report Type: 
  Country: None (occurrence: None)
  Receive Date: 20040919
  Receipt Date: 20040901
  Transmission Date: 20050211
  Serious: Yes (Other)
  Sender: FDA-Public Use
  Company Number: CIO04019899

PATIENT
  Age: 22 Year
  Sex: Male
  Weight: 86.2 kg

DRUGS (1)
  1. METAMUCIL-2 [Suspect]
     Dosage: 1 TBSP, 1/DAY FOR  2 DAYS; ORAL
     Route: 048
     Dates: start: 20040827, end: 20040828

REACTIONS (4)
  - DYSPNOEA [None]
  - HYPERSENSITIVITY [None]
  - PRURITUS GENERALISED [None]
  - URTICARIA [None]
